FAERS Safety Report 5234781-4 (Version None)
Quarter: 2007Q1

REPORT INFORMATION
  Report Type: 
  Country: None (occurrence: None)
  Receive Date: 20070209
  Receipt Date: 20070206
  Transmission Date: 20070707
  Serious: Yes (Hospitalization)
  Sender: FDA-Public Use
  Company Number: JP-BOEHRINGER INGELHEIM PHARMACEUTICALS, INC.-2006-BP-13347NB

PATIENT
  Sex: Male
  Weight: 59 kg

DRUGS (4)
  1. BI-SIFROL TABLETS [Suspect]
     Indication: PARKINSON'S DISEASE
     Dates: start: 20061024, end: 20061109
  2. PERMAX [Suspect]
  3. NEODOPASTON [Suspect]
  4. MUCODYNE [Suspect]

REACTIONS (1)
  - JAUNDICE CHOLESTATIC [None]
